FAERS Safety Report 10085166 (Version 2)
Quarter: 2014Q2

REPORT INFORMATION
  Report Type: Spontaneous
  Country: US (occurrence: US)
  Receive Date: 20140417
  Receipt Date: 20140610
  Transmission Date: 20141212
  Serious: No
  Sender: FDA-Public Use
  Company Number: US-GILEAD-2014-0099410

PATIENT
  Sex: Male
  Weight: 77.98 kg

DRUGS (2)
  1. SOVALDI [Suspect]
     Indication: HEPATITIS C
     Dosage: 400 MG, QD
     Route: 048
     Dates: start: 20140123, end: 20140515
  2. RIBAPAK [Concomitant]
     Indication: HEPATITIS C
     Dosage: 600 MG, BID
     Route: 048
     Dates: start: 20140123, end: 20140515

REACTIONS (2)
  - Viral test positive [Recovered/Resolved]
  - Drug ineffective [Recovered/Resolved]
